FAERS Safety Report 24023568 (Version 2)
Quarter: 2024Q2

REPORT INFORMATION
  Report Type: Report from Study
  Country: VN (occurrence: VN)
  Receive Date: 20240627
  Receipt Date: 20240628
  Transmission Date: 20240716
  Serious: No
  Sender: FDA-Public Use
  Company Number: VN-ROCHE-3518194

PATIENT
  Age: 66 Year
  Sex: Female

DRUGS (1)
  1. ALECENSA [Suspect]
     Active Substance: ALECTINIB HYDROCHLORIDE
     Indication: Non-small cell lung cancer metastatic
     Route: 048
     Dates: start: 202211, end: 20240227

REACTIONS (1)
  - Vestibular disorder [Recovering/Resolving]

NARRATIVE: CASE EVENT DATE: 20240224
